FAERS Safety Report 25398531 (Version 1)
Quarter: 2025Q2

REPORT INFORMATION
  Report Type: Spontaneous
  Country: BR (occurrence: BR)
  Receive Date: 20250604
  Receipt Date: 20250604
  Transmission Date: 20250716
  Serious: Yes (Other)
  Sender: NOVARTIS
  Company Number: BR-002147023-NVSC2025BR087707

PATIENT

DRUGS (3)
  1. IMATINIB [Suspect]
     Active Substance: IMATINIB
     Indication: Product used for unknown indication
     Route: 065
  2. NILOTINIB [Suspect]
     Active Substance: NILOTINIB
     Indication: Product used for unknown indication
     Route: 065
  3. ASCIMINIB [Suspect]
     Active Substance: ASCIMINIB
     Indication: Product used for unknown indication
     Route: 065

REACTIONS (11)
  - Bone lesion [Unknown]
  - Acute myocardial infarction [Unknown]
  - Philadelphia chromosome positive [Unknown]
  - Coronary artery disease [Unknown]
  - Hypertension [Unknown]
  - Dyslipidaemia [Unknown]
  - Intermittent claudication [Unknown]
  - Arterial occlusive disease [Unknown]
  - Cytogenetic response [Unknown]
  - Drug resistance [Unknown]
  - Drug ineffective [Unknown]
